FAERS Safety Report 19583172 (Version 3)
Quarter: 2021Q3

REPORT INFORMATION
  Report Type: Report from Study
  Country: AT (occurrence: AT)
  Receive Date: 20210719
  Receipt Date: 20210816
  Transmission Date: 20211014
  Serious: Yes (Other)
  Sender: FDA-Public Use
  Company Number: AT-CELLTRION INC.-2021AT009531

PATIENT

DRUGS (31)
  1. TRASTUZUMAB (UNKNOWN) [Suspect]
     Active Substance: TRASTUZUMAB
     Indication: BREAST CANCER METASTATIC
     Dosage: 354 MG, EVERY 3 WEEKS
     Route: 041
     Dates: start: 20160629, end: 20180621
  2. LETROZOLE. [Suspect]
     Active Substance: LETROZOLE
     Indication: PRODUCT USED FOR UNKNOWN INDICATION
     Dosage: 2.5 MG, DAILY
     Route: 048
     Dates: start: 20161021, end: 20200629
  3. DENOSUMAB [Suspect]
     Active Substance: DENOSUMAB
     Indication: HER2 POSITIVE BREAST CANCER
     Dosage: 120 MG, EVERY 4 WEEKS
     Route: 058
     Dates: start: 20161121, end: 20210126
  4. BETAISODONA [Concomitant]
     Active Substance: POVIDONE-IODINE
     Dosage: ONGOING = CHECKED
     Dates: start: 20201111
  5. THROMBO ASS [Concomitant]
     Active Substance: ASPIRIN
     Dosage: ONGOING = CHECKED
     Dates: start: 20170115
  6. DIPRODERM (BETAMETHASONE DIPROPIONATE) [Concomitant]
     Active Substance: BETAMETHASONE DIPROPIONATE
     Indication: RASH
     Dosage: UNK, EVERY 0.5 DAY
     Route: 061
     Dates: start: 20180121
  7. LISINOPRIL. [Concomitant]
     Active Substance: LISINOPRIL
     Dosage: UNK
     Route: 048
     Dates: start: 20170115
  8. EUTHYROX [Concomitant]
     Active Substance: LEVOTHYROXINE SODIUM
     Dosage: 75 MG, DAILY
     Route: 048
     Dates: start: 20210223
  9. EUTHYROX [Concomitant]
     Active Substance: LEVOTHYROXINE SODIUM
     Dosage: 100 UG
     Route: 048
     Dates: end: 20210222
  10. ADVANTAN [Concomitant]
     Active Substance: METHYLPREDNISOLONE ACEPONATE
     Indication: PALMAR-PLANTAR ERYTHRODYSAESTHESIA SYNDROME
     Dosage: UNK
     Route: 061
     Dates: start: 20201111
  11. PERTUZUMAB. [Suspect]
     Active Substance: PERTUZUMAB
     Indication: BREAST CANCER METASTATIC
     Dosage: 420 MG, EVERY 3 WEEKS
     Route: 042
     Dates: start: 20160629, end: 20180621
  12. PERTUZUMAB. [Suspect]
     Active Substance: PERTUZUMAB
     Indication: BREAST CANCER
     Dosage: 420 MG, EVERY 4 WEEKS
     Route: 042
     Dates: start: 20180719, end: 20200227
  13. RIBOCICLIB. [Suspect]
     Active Substance: RIBOCICLIB
     Indication: HER2 POSITIVE BREAST CANCER
     Dosage: 400 MG
     Route: 048
     Dates: start: 20201024
  14. ADVANTAN [Concomitant]
     Active Substance: METHYLPREDNISOLONE ACEPONATE
     Dosage: ONGOING = CHECKED
     Dates: start: 20201111
  15. TRASTUZUMAB (UNKNOWN) [Suspect]
     Active Substance: TRASTUZUMAB
     Indication: BREAST CANCER
     Dosage: 372 MG, EVERY 4 WEEKS
     Route: 041
     Dates: start: 20180719, end: 20200227
  16. DOCETAXEL. [Suspect]
     Active Substance: DOCETAXEL
     Indication: HER2 POSITIVE BREAST CANCER
  17. LISINOPRIL. [Concomitant]
     Active Substance: LISINOPRIL
     Dosage: ONGOING = CHECKED
     Dates: start: 20170115
  18. PERTUZUMAB. [Suspect]
     Active Substance: PERTUZUMAB
     Indication: HER2 POSITIVE BREAST CANCER
     Dosage: 420 MG, EVERY 3 WEEKS
     Route: 042
     Dates: start: 20200227, end: 20200320
  19. FULVESTRANT. [Suspect]
     Active Substance: FULVESTRANT
     Indication: HER2 POSITIVE BREAST CANCER
     Dosage: 500 MG, EVERY 4 WEEKS
     Route: 058
     Dates: start: 20200716
  20. LETROZOLE. [Suspect]
     Active Substance: LETROZOLE
     Indication: HER2 POSITIVE BREAST CANCER
  21. BETAISODONA [Concomitant]
     Active Substance: POVIDONE-IODINE
     Indication: PARONYCHIA
     Dosage: UNK
     Route: 061
     Dates: start: 20201111
  22. DIPRODERM (BETAMETHASONE DIPROPIONATE) [Concomitant]
     Active Substance: BETAMETHASONE DIPROPIONATE
     Dosage: ONGOING = CHECKED
     Dates: start: 20180621
  23. NOMEXOR [Concomitant]
     Active Substance: NEBIVOLOL HYDROCHLORIDE
     Dosage: UNK
     Route: 048
     Dates: start: 201701
  24. THROMBO ASS [Concomitant]
     Active Substance: ASPIRIN
     Dosage: UNK
     Dates: start: 20170115
  25. TRASTUZUMAB (UNKNOWN) [Suspect]
     Active Substance: TRASTUZUMAB
     Indication: HER2 POSITIVE BREAST CANCER
     Dosage: 372 MG, EVERY 3 WEEKS
     Route: 041
     Dates: start: 20200227, end: 20200320
  26. ATORVASTATIN [Concomitant]
     Active Substance: ATORVASTATIN
     Indication: HYPERCHOLESTEROLAEMIA
     Dosage: 20 MG
     Route: 048
     Dates: start: 201701, end: 201701
  27. NOMEXOR [Concomitant]
     Active Substance: NEBIVOLOL HYDROCHLORIDE
     Dosage: UNK
     Route: 048
     Dates: start: 20170115
  28. NOMEXOR [Concomitant]
     Active Substance: NEBIVOLOL HYDROCHLORIDE
     Dosage: ONGOING = CHECKED
     Dates: start: 20170115
  29. FULVESTRANT. [Suspect]
     Active Substance: FULVESTRANT
     Indication: PRODUCT USED FOR UNKNOWN INDICATION
     Dosage: 500 MG, EVERY 4 WEEKS
     Route: 058
     Dates: start: 20200716
  30. DOCETAXEL. [Suspect]
     Active Substance: DOCETAXEL
     Indication: PRODUCT USED FOR UNKNOWN INDICATION
     Dosage: 75 MG, EVERY 3 WEEKS (RECENT DOSE ON 13/OCT/2016)
     Route: 042
     Dates: start: 20160629, end: 20161013
  31. RIBOCICLIB. [Suspect]
     Active Substance: RIBOCICLIB
     Indication: PRODUCT USED FOR UNKNOWN INDICATION
     Dosage: 600 MG
     Route: 048
     Dates: start: 20200716, end: 20200814

REACTIONS (2)
  - Osteonecrosis of jaw [Recovering/Resolving]
  - Off label use [Unknown]

NARRATIVE: CASE EVENT DATE: 20201215
